FAERS Safety Report 25794443 (Version 1)
Quarter: 2025Q3

REPORT INFORMATION
  Report Type: Spontaneous
  Country: EG (occurrence: EG)
  Receive Date: 20250912
  Receipt Date: 20250912
  Transmission Date: 20251021
  Serious: Yes (Death, Life-Threatening, Hospitalization)
  Sender: SANOFI AVENTIS
  Company Number: EG-SA-2025SA271703

PATIENT
  Age: 85 Year
  Sex: Male
  Weight: 80 kg

DRUGS (9)
  1. ENOXAPARIN SODIUM [Suspect]
     Active Substance: ENOXAPARIN SODIUM
     Indication: Atrial fibrillation
     Route: 058
     Dates: start: 20250719, end: 20250725
  2. CONTROLOC [Concomitant]
     Active Substance: PANTOPRAZOLE SODIUM
     Dates: start: 20250719
  3. CEFTRIAXONE [Concomitant]
     Active Substance: CEFTRIAXONE
     Dosage: UNK, QD (1-2G)/DAY
     Dates: start: 20250719
  4. ALFACLINDAMYCIN [Concomitant]
     Dates: start: 20250719
  5. AMLODIPINE [Concomitant]
     Active Substance: AMLODIPINE BESYLATE
     Dates: start: 20250719
  6. ATROVENT [Concomitant]
     Active Substance: IPRATROPIUM BROMIDE
     Dates: start: 20250721
  7. SODIUM BICARBONATE [Concomitant]
     Active Substance: SODIUM BICARBONATE
     Dates: start: 20250725
  8. MAGNESIUM SULFATE [Concomitant]
     Active Substance: MAGNESIUM SULFATE
     Dates: start: 20250725
  9. BUDESONIDE [Concomitant]
     Active Substance: BUDESONIDE
     Dates: start: 20250721

REACTIONS (1)
  - Heparin-induced thrombocytopenia [Fatal]

NARRATIVE: CASE EVENT DATE: 20250725
